FAERS Safety Report 15020262 (Version 1)
Quarter: 2018Q2

REPORT INFORMATION
  Report Type: Spontaneous
  Country: ES (occurrence: ES)
  Receive Date: 20180618
  Receipt Date: 20180618
  Transmission Date: 20180711
  Serious: Yes (Other)
  Sender: FDA-Public Use
  Company Number: ES-009507513-1806ESP004420

PATIENT
  Age: 53 Year
  Sex: Female

DRUGS (3)
  1. BIFOAL SEMANAL [Suspect]
     Active Substance: ALENDRONATE SODIUM
     Indication: OSTEOPOROSIS
     Dosage: UNK
     Route: 048
     Dates: start: 20100720, end: 20130315
  2. ADROVANCE [Suspect]
     Active Substance: ALENDRONATE SODIUM\CHOLECALCIFEROL
     Indication: OSTEOPOROSIS
     Dosage: UNK; STRENGTH: 70 MG/ 5.600UI
     Route: 048
     Dates: start: 20090211, end: 20100720
  3. PROLIA [Suspect]
     Active Substance: DENOSUMAB
     Indication: OSTEOPOROSIS
     Dosage: UNK
     Dates: start: 20130315, end: 20180220

REACTIONS (1)
  - Osteonecrosis [Recovering/Resolving]

NARRATIVE: CASE EVENT DATE: 20180504
